FAERS Safety Report 5932690-6 (Version None)
Quarter: 2008Q4

REPORT INFORMATION
  Report Type: 
  Country: None (occurrence: None)
  Receive Date: 20081027
  Receipt Date: 20081027
  Transmission Date: 20090506
  Serious: No
  Sender: FDA-Public Use
  Company Number: None

PATIENT
  Age: 49 Year
  Sex: Female
  Weight: 98.8842 kg

DRUGS (2)
  1. FACTIVE [Suspect]
     Indication: SINUSITIS
     Dosage: 320 MG ONCE PER DAY PO
     Route: 048
     Dates: start: 20080129, end: 20080202
  2. FACTIVE [Suspect]
     Indication: UPPER RESPIRATORY TRACT INFECTION
     Dosage: 320 MG ONCE PER DAY PO
     Route: 048
     Dates: start: 20080129, end: 20080202

REACTIONS (2)
  - MUSCLE INJURY [None]
  - ROTATOR CUFF SYNDROME [None]
